FAERS Safety Report 17153934 (Version 3)
Quarter: 2020Q4

REPORT INFORMATION
  Report Type: Report from Study
  Country: US (occurrence: US)
  Receive Date: 20191213
  Receipt Date: 20201021
  Transmission Date: 20210113
  Serious: No
  Sender: FDA-Public Use
  Company Number: NVSC2019US064908

PATIENT
  Age: 55 Year
  Sex: Female

DRUGS (2)
  1. MAYZENT [Suspect]
     Active Substance: SIPONIMOD
     Indication: MULTIPLE SCLEROSIS
     Dosage: 2 MG, QD
     Route: 048
     Dates: start: 20190916
  2. MAYZENT [Suspect]
     Active Substance: SIPONIMOD
     Dosage: 1 DF, Q48H (ALTERNATE DOSING - MONDAY, WEDNESDAY, FRIDAY))
     Route: 048

REACTIONS (9)
  - White blood cell count decreased [Unknown]
  - Inappropriate schedule of product administration [Unknown]
  - Osteoporosis [Recovering/Resolving]
  - Muscular weakness [Recovering/Resolving]
  - Ankle fracture [Recovering/Resolving]
  - Neuralgia [Recovering/Resolving]
  - Fall [Recovering/Resolving]
  - Peripheral swelling [Recovering/Resolving]
  - Lymphocyte count decreased [Unknown]

NARRATIVE: CASE EVENT DATE: 20190922
